FAERS Safety Report 6896516-9 (Version None)
Quarter: 2010Q3

REPORT INFORMATION
  Report Type: 
  Country: None (occurrence: None)
  Receive Date: 20100802
  Receipt Date: 20090309
  Transmission Date: 20110219
  Serious: No
  Sender: FDA-Public Use
  Company Number: US-PFIZER INC-2009180954

PATIENT
  Sex: Female
  Weight: 59 kg

DRUGS (3)
  1. NORVASC [Suspect]
     Dosage: 5 MG, 1X/DAY
  2. PLAVIX [Concomitant]
  3. SIMVASTATIN [Concomitant]

REACTIONS (1)
  - PRURITUS GENERALISED [None]
